FAERS Safety Report 7389686-X (Version None)
Quarter: 2011Q2

REPORT INFORMATION
  Report Type: 
  Country: None (occurrence: None)
  Receive Date: 20110401
  Receipt Date: 20110325
  Transmission Date: 20111010
  Serious: Yes (Death)
  Sender: FDA-Public Use
  Company Number: JP-MERCK-1103USA03845

PATIENT
  Age: 81 Year
  Sex: Female

DRUGS (7)
  1. THYRADIN-S [Concomitant]
     Route: 065
  2. GLYCORAN [Concomitant]
     Route: 065
  3. MELBIN [Concomitant]
     Route: 065
  4. DIOVAN [Concomitant]
     Route: 065
  5. AMLODIPINE BESYLATE [Concomitant]
     Route: 065
  6. JANUVIA [Suspect]
     Indication: TYPE 2 DIABETES MELLITUS
     Route: 048
     Dates: start: 20100716, end: 20110113
  7. LASIX [Concomitant]
     Route: 065

REACTIONS (1)
  - PNEUMONIA ASPIRATION [None]
